FAERS Safety Report 8446902-0 (Version None)
Quarter: 2012Q2

REPORT INFORMATION
  Report Type: 
  Country: None (occurrence: None)
  Receive Date: 20120612
  Receipt Date: 20120612
  Transmission Date: 20120825
  Serious: Yes (Other)
  Sender: FDA-Public Use
  Company Number: None

PATIENT
  Sex: Female
  Weight: 120.8 kg

DRUGS (5)
  1. FIORICET [Concomitant]
  2. PHENERGAN [Concomitant]
  3. TOPIRAMATE [Suspect]
     Indication: MIGRAINE PROPHYLAXIS
     Dosage: 50MG 1 BID PO
     Route: 048
     Dates: start: 20110922, end: 20111228
  4. HYDROCHLOROTHIAZIDE [Concomitant]
  5. TOPIRAMATE [Suspect]
     Indication: MIGRAINE PROPHYLAXIS
     Dosage: 100MG 1 BID PO
     Route: 048
     Dates: start: 20110909, end: 20110919

REACTIONS (6)
  - PARAESTHESIA [None]
  - HEADACHE [None]
  - MOOD SWINGS [None]
  - AMENORRHOEA [None]
  - PRODUCT SUBSTITUTION ISSUE [None]
  - INSOMNIA [None]
